FAERS Safety Report 8114690-3 (Version None)
Quarter: 2012Q1

REPORT INFORMATION
  Report Type: 
  Country: None (occurrence: None)
  Receive Date: 20120202
  Receipt Date: 20120202
  Transmission Date: 20120608
  Serious: Yes (Other)
  Sender: FDA-Public Use
  Company Number: None

PATIENT
  Age: 62 Year
  Sex: Female

DRUGS (3)
  1. BACLOFEN [Concomitant]
  2. COPAXONE [Concomitant]
  3. AMPYRA [Suspect]
     Indication: MULTIPLE SCLEROSIS
     Dosage: 10MG Q12H ORALLY
     Route: 048
     Dates: start: 20110729, end: 20111222

REACTIONS (2)
  - PRURITUS [None]
  - RASH [None]
